FAERS Safety Report 7148912-2 (Version None)
Quarter: 2010Q4

REPORT INFORMATION
  Report Type: 
  Country: None (occurrence: None)
  Receive Date: 20101209
  Receipt Date: 20101203
  Transmission Date: 20110411
  Serious: Yes (Other)
  Sender: FDA-Public Use
  Company Number: A0869084A

PATIENT
  Sex: Female

DRUGS (12)
  1. TYKERB [Suspect]
     Dosage: 1250MG PER DAY
     Route: 048
     Dates: start: 20100703, end: 20101203
  2. MORPHINE [Concomitant]
     Route: 065
  3. CYMBALTA [Concomitant]
     Route: 065
  4. OXAZEPAM [Concomitant]
     Route: 065
  5. DOMPERIDONE [Concomitant]
     Route: 065
  6. PROCHLORPERAZINE [Concomitant]
     Route: 065
  7. SYNTHROID [Concomitant]
     Route: 065
  8. SENOKOT [Concomitant]
     Route: 065
  9. DOCUSATE [Concomitant]
     Route: 065
  10. XELODA [Concomitant]
     Route: 065
  11. STEMETIL [Concomitant]
  12. COLACE [Concomitant]

REACTIONS (3)
  - DIARRHOEA [None]
  - MALIGNANT NEOPLASM PROGRESSION [None]
  - NAUSEA [None]
